FAERS Safety Report 6443469-3 (Version None)
Quarter: 2009Q4

REPORT INFORMATION
  Report Type: 
  Country: None (occurrence: None)
  Receive Date: 20091117
  Receipt Date: 20091106
  Transmission Date: 20100525
  Serious: Yes (Other)
  Sender: FDA-Public Use
  Company Number: DK-NOVOPROD-300571

PATIENT
  Sex: Female
  Weight: 2.125 kg

DRUGS (4)
  1. LEVEMIR [Suspect]
     Indication: DRUG EXPOSURE DURING PREGNANCY
     Dosage: 14 IU, QD AT GESTATIONAL WEEK 9
     Route: 064
  2. LEVEMIR [Suspect]
     Dosage: 34 IU, QD AT GESTATIONAL WEEK 35
     Route: 064
  3. NOVORAPID [Suspect]
     Indication: DRUG EXPOSURE DURING PREGNANCY
     Dosage: 26 IU, QD AT GESTATIONAL WEEK 9
     Route: 064
  4. NOVORAPID [Suspect]
     Dosage: 36 IU, QD AT GESTATIONAL WEEK 35
     Route: 064

REACTIONS (3)
  - DRUG EXPOSURE DURING PREGNANCY [None]
  - HYDRONEPHROSIS [None]
  - PREMATURE BABY [None]
